FAERS Safety Report 7626783-5 (Version None)
Quarter: 2011Q3

REPORT INFORMATION
  Report Type: 
  Country: None (occurrence: None)
  Receive Date: 20110721
  Receipt Date: 20110714
  Transmission Date: 20111222
  Serious: Yes (Hospitalization)
  Sender: FDA-Public Use
  Company Number: US-SANOFI-AVENTIS-2011SA045247

PATIENT
  Age: 24 Year
  Sex: Female

DRUGS (2)
  1. LANTUS [Suspect]
     Indication: TYPE 1 DIABETES MELLITUS
     Dosage: DOSE:78 UNIT(S)
     Route: 058
     Dates: start: 20091201
  2. SOLOSTAR [Suspect]
     Indication: TYPE 1 DIABETES MELLITUS
     Dates: start: 20091201

REACTIONS (3)
  - INCORRECT DRUG DOSAGE FORM ADMINISTERED [None]
  - PANCREATITIS [None]
  - BLOOD GLUCOSE INCREASED [None]
